FAERS Safety Report 5735236-0 (Version None)
Quarter: 2008Q2

REPORT INFORMATION
  Report Type: 
  Country: None (occurrence: None)
  Receive Date: 20080512
  Receipt Date: 20080508
  Transmission Date: 20081010
  Serious: Yes (Life-Threatening)
  Sender: FDA-Public Use
  Company Number: JP-ASTRAZENECA-2008AP02914

PATIENT
  Age: 54 Year
  Sex: Male
  Weight: 60 kg

DRUGS (12)
  1. MEROPENEM [Suspect]
     Indication: PYELONEPHRITIS ACUTE
     Route: 042
     Dates: start: 20071216, end: 20071216
  2. MEROPENEM [Suspect]
     Route: 042
     Dates: start: 20071217, end: 20071217
  3. MEROPENEM [Suspect]
     Route: 042
     Dates: start: 20071218, end: 20071218
  4. TARGOCID [Suspect]
     Route: 042
     Dates: start: 20071211, end: 20071211
  5. TARGOCID [Suspect]
     Route: 042
     Dates: start: 20071212, end: 20071213
  6. MINOMYCIN [Suspect]
     Route: 048
     Dates: start: 20071211, end: 20071216
  7. OMEGACIN [Suspect]
     Route: 042
     Dates: start: 20071212, end: 20071215
  8. GRAN [Concomitant]
  9. HYDROCORTONE [Concomitant]
     Route: 042
  10. NEOMINOPHAGEN-C [Concomitant]
     Route: 042
     Dates: start: 20071213
  11. IMMUNE GLOBULIN INTRAVENOUS (HUMAN) [Concomitant]
     Route: 042
     Dates: start: 20071215
  12. VANCOMYCIN HYDROCHLORIDE [Concomitant]
     Route: 042
     Dates: start: 20071216, end: 20071216

REACTIONS (3)
  - ACUTE RESPIRATORY DISTRESS SYNDROME [None]
  - DISSEMINATED INTRAVASCULAR COAGULATION [None]
  - PANCYTOPENIA [None]
